FAERS Safety Report 9492823 (Version 1)
Quarter: 2013Q3

REPORT INFORMATION
  Report Type: Spontaneous
  Country: US (occurrence: US)
  Receive Date: 20130830
  Receipt Date: 20130830
  Transmission Date: 20140515
  Serious: No
  Sender: FDA-Public Use
  Company Number: US-BAYER-2013-105571

PATIENT
  Age: 44 Year
  Sex: Male
  Weight: 134 kg

DRUGS (3)
  1. ALEVE TABLET [Suspect]
     Dosage: 2 DF, QD
     Route: 048
     Dates: start: 201307
  2. CENTRUM [Concomitant]
  3. CLARITIN [Concomitant]

REACTIONS (1)
  - Incorrect drug administration duration [None]
